FAERS Safety Report 4834688-8 (Version None)
Quarter: 2005Q4

REPORT INFORMATION
  Report Type: 
  Country: None (occurrence: None)
  Receive Date: 20051122
  Receipt Date: 20050622
  Transmission Date: 20060501
  Serious: Yes (Other)
  Sender: FDA-Public Use
  Company Number: US-BRISTOL-MYERS SQUIBB COMPANY-13013420

PATIENT
  Sex: Male

DRUGS (2)
  1. PRAVACHOL [Suspect]
     Dates: start: 20010607
  2. LIPITOR [Suspect]
     Dates: start: 20020425

REACTIONS (1)
  - NEUROPATHY PERIPHERAL [None]
